FAERS Safety Report 16222105 (Version 1)
Quarter: 2019Q2

REPORT INFORMATION
  Report Type: Spontaneous
  Country: FR (occurrence: FR)
  Receive Date: 20190422
  Receipt Date: 20190422
  Transmission Date: 20190711
  Serious: Yes (Other)
  Sender: FDA-Public Use
  Company Number: FR-SA-2019SA107872

PATIENT
  Age: 46 Year
  Sex: Female
  Weight: 64 kg

DRUGS (6)
  1. CORGARD [Concomitant]
     Active Substance: NADOLOL
     Dosage: UNK
  2. AMOXICILLIN SODIUM [Suspect]
     Active Substance: AMOXICILLIN SODIUM
     Indication: ARTHRITIS BACTERIAL
     Dosage: 9 G, QD
     Route: 042
     Dates: start: 20190311
  3. MAXALT [Concomitant]
     Active Substance: RIZATRIPTAN BENZOATE
     Dosage: UNK
  4. RIFADINE [Suspect]
     Active Substance: RIFAMPIN
     Indication: ARTHRITIS BACTERIAL
     Dosage: 2 DF, QD
     Route: 042
     Dates: start: 20190311
  5. METHYLPREDNISOLONE. [Suspect]
     Active Substance: METHYLPREDNISOLONE
     Indication: ERYTHEMA
     Dosage: 1 DF, QD
     Route: 040
     Dates: start: 20190311, end: 20190311
  6. KETOPROFENE [KETOPROFEN] [Concomitant]
     Active Substance: KETOPROFEN
     Dosage: UNK

REACTIONS (4)
  - Influenza like illness [Recovering/Resolving]
  - Nervousness [Recovering/Resolving]
  - Nausea [Recovering/Resolving]
  - Hypertension [Not Recovered/Not Resolved]

NARRATIVE: CASE EVENT DATE: 20190312
